FAERS Safety Report 11631646 (Version 1)
Quarter: 2015Q4

REPORT INFORMATION
  Report Type: Spontaneous
  Country: TR (occurrence: TR)
  Receive Date: 20151015
  Receipt Date: 20151015
  Transmission Date: 20160304
  Serious: Yes (Hospitalization, Other)
  Sender: FDA-Public Use
  Company Number: PHHY2015TR122624

PATIENT
  Age: 13 Year
  Sex: Male

DRUGS (3)
  1. PLASMA, FRESH FROZEN [Concomitant]
     Active Substance: HUMAN PLASMA
     Indication: CONGO-CRIMEAN HAEMORRHAGIC FEVER
     Dosage: 10 ML/KG, QD
     Route: 065
  2. RIBAVIRIN. [Suspect]
     Active Substance: RIBAVIRIN
     Indication: CONGO-CRIMEAN HAEMORRHAGIC FEVER
     Dosage: 2 G, QD
     Route: 065
  3. RIBAVIRIN. [Suspect]
     Active Substance: RIBAVIRIN
     Dosage: 1 G, QID
     Route: 065

REACTIONS (1)
  - Myocarditis [Recovered/Resolved]
